FAERS Safety Report 10978948 (Version 1)
Quarter: 2015Q2

REPORT INFORMATION
  Report Type: Spontaneous
  Country: US (occurrence: None)
  Receive Date: 20150401
  Receipt Date: 20150401
  Transmission Date: 20150821
  Serious: Yes (Life-Threatening)
  Sender: FDA-Public Use
  Company Number: None

PATIENT

DRUGS (5)
  1. EYLEA [Suspect]
     Active Substance: AFLIBERCEPT
     Indication: MACULAR DEGENERATION
     Dosage: INTRAORAL DOSE
     Route: 031
     Dates: start: 20140210, end: 20140331
  2. AMLODIPINE [Concomitant]
     Active Substance: AMLODIPINE BESYLATE
  3. CHLORTHALIDONE. [Concomitant]
     Active Substance: CHLORTHALIDONE
  4. AVAPRO [Concomitant]
     Active Substance: IRBESARTAN
  5. ATENOLOL. [Concomitant]
     Active Substance: ATENOLOL

REACTIONS (4)
  - Chronic kidney disease [None]
  - Condition aggravated [None]
  - Renal transplant [None]
  - Macular degeneration [None]

NARRATIVE: CASE EVENT DATE: 20140210
